FAERS Safety Report 8178726-6 (Version None)
Quarter: 2012Q1

REPORT INFORMATION
  Report Type: 
  Country: None (occurrence: None)
  Receive Date: 20120301
  Receipt Date: 20120301
  Transmission Date: 20120608
  Serious: Yes (Other)
  Sender: FDA-Public Use
  Company Number: None

PATIENT
  Age: 58 Year
  Sex: Male
  Weight: 79.378 kg

DRUGS (1)
  1. CIPRO [Suspect]
     Indication: URINARY TRACT INFECTION
     Dosage: 1 TABLET
     Route: 048
     Dates: start: 20120207, end: 20120213

REACTIONS (7)
  - INFLAMMATION [None]
  - PARAESTHESIA [None]
  - BURNING SENSATION [None]
  - HYPERAESTHESIA [None]
  - PAIN IN EXTREMITY [None]
  - GROIN PAIN [None]
  - URINARY RETENTION [None]
